FAERS Safety Report 5342700-5 (Version None)
Quarter: 2007Q2

REPORT INFORMATION
  Report Type: 
  Country: None (occurrence: None)
  Receive Date: 20070601
  Receipt Date: 20070220
  Transmission Date: 20071010
  Serious: No
  Sender: FDA-Public Use
  Company Number: A0640303A

PATIENT
  Age: 63 Year
  Sex: Female

DRUGS (4)
  1. AUGMENTIN '125' [Suspect]
     Dosage: 1000MG TWICE PER DAY
     Route: 048
     Dates: start: 20070119
  2. BYETTA [Suspect]
     Dosage: 5MCG TWICE PER DAY
     Route: 058
     Dates: start: 20070118, end: 20070118
  3. METFORMIN HCL [Concomitant]
     Dates: start: 20020101
  4. LYRICA [Concomitant]
     Dates: start: 20070115

REACTIONS (1)
  - DIARRHOEA [None]
